FAERS Safety Report 11720905 (Version 1)
Quarter: 2015Q4

REPORT INFORMATION
  Report Type: Spontaneous
  Country: US (occurrence: US)
  Receive Date: 20151110
  Receipt Date: 20151110
  Transmission Date: 20160304
  Serious: No
  Sender: FDA-Public Use
  Company Number: US-SA-2015SA136309

PATIENT
  Sex: Female

DRUGS (2)
  1. ALIROCUMAB PREFILLED PEN [Concomitant]
     Dates: start: 20150817, end: 20150901
  2. PRALUENT [Suspect]
     Active Substance: ALIROCUMAB
     Route: 065
     Dates: start: 20150817, end: 20150901

REACTIONS (5)
  - Confusional state [Unknown]
  - Malaise [Unknown]
  - Lethargy [Unknown]
  - Hyperhidrosis [Unknown]
  - Myalgia [Unknown]

NARRATIVE: CASE EVENT DATE: 2015
